FAERS Safety Report 19099261 (Version 2)
Quarter: 2021Q2

REPORT INFORMATION
  Report Type: Spontaneous
  Country: US (occurrence: US)
  Receive Date: 20210406
  Receipt Date: 20210514
  Transmission Date: 20210717
  Serious: No
  Sender: FDA-Public Use
  Company Number: US-TEVA-2021-US-1897723

PATIENT
  Sex: Female

DRUGS (2)
  1. LOSARTAN. [Suspect]
     Active Substance: LOSARTAN
     Indication: BLOOD PRESSURE ABNORMAL
     Route: 065
  2. ATENOLOL TEVA [Suspect]
     Active Substance: ATENOLOL
     Indication: PALPITATIONS
     Route: 065

REACTIONS (4)
  - Heart rate increased [Unknown]
  - Heart rate decreased [Unknown]
  - Dyspnoea [Unknown]
  - Dyspnoea exertional [Unknown]
